FAERS Safety Report 9726693 (Version 2)
Quarter: 2013Q4

REPORT INFORMATION
  Report Type: Spontaneous
  Country: JP (occurrence: None)
  Receive Date: 20131129
  Receipt Date: 20131223
  Transmission Date: 20140711
  Serious: Yes (Other)
  Sender: FDA-Public Use
  Company Number: SYM-2013-13103

PATIENT
  Age: 76 Year
  Sex: Male

DRUGS (4)
  1. FLUOROURACIL [Suspect]
     Indication: OESOPHAGEAL CANCER METASTATIC
     Dosage: 1070 MG
     Dates: start: 2012, end: 2012
  2. CISPLATIN (CISPLATIN) (CISPLATIN) [Suspect]
     Indication: OESOPHAGEAL CANCER METASTATIC
     Dosage: 20 MG
     Dates: start: 2012, end: 2012
  3. DOCETAXEL (DOCETAXEL) (DOCETAXEL) [Suspect]
     Indication: OESOPHAGEAL CANCER METASTATIC
     Dosage: 60 MG, EVERY CYCLE
     Dates: start: 2012, end: 2012
  4. TS-1 [Suspect]
     Indication: OESOPHAGEAL CANCER METASTATIC
     Dosage: 80 MG, 2 IN 1 D
     Dates: start: 2012

REACTIONS (5)
  - Diarrhoea [None]
  - Decreased appetite [None]
  - Bone marrow failure [None]
  - Hyponatraemia [None]
  - Malaise [None]
